FAERS Safety Report 7220658-1 (Version None)
Quarter: 2011Q1

REPORT INFORMATION
  Report Type: 
  Country: None (occurrence: None)
  Receive Date: 20110111
  Receipt Date: 20110105
  Transmission Date: 20110831
  Serious: Yes (Death)
  Sender: FDA-Public Use
  Company Number: GB-ABBOTT-10P-167-0693453-00

PATIENT
  Age: 25 Year
  Sex: Male

DRUGS (16)
  1. AMIKACIN [Concomitant]
     Indication: TUBERCULOSIS
     Route: 042
  2. ONDANSETRON [Suspect]
     Indication: PRODUCT USED FOR UNKNOWN INDICATION
  3. FLUCONAZOLE [Suspect]
     Indication: ORAL CANDIDIASIS
  4. ETHAMBUTOL HYDROCHLORIDE [Concomitant]
     Indication: TUBERCULOSIS
     Route: 042
  5. CLOFAZAMINE [Concomitant]
     Indication: PRODUCT USED FOR UNKNOWN INDICATION
  6. DARUNAVIR [Concomitant]
     Indication: HIV INFECTION
  7. HEPARIN LOW MOLECULAR WEIGHT UNSPECIFIED [Concomitant]
     Indication: PRODUCT USED FOR UNKNOWN INDICATION
  8. TRUVADA [Concomitant]
     Indication: HIV INFECTION
  9. RITONAVIR [Suspect]
     Indication: HIV INFECTION
  10. CYCLOSERINE [Concomitant]
     Indication: TUBERCULOSIS
  11. VALGANCICLOVIR HCL [Concomitant]
     Indication: PRODUCT USED FOR UNKNOWN INDICATION
  12. MOXIFLOXACIN [Suspect]
     Indication: TUBERCULOSIS
  13. PROTHIONAMIDE [Concomitant]
     Indication: TUBERCULOSIS
     Route: 042
  14. LINEZOLID [Concomitant]
     Indication: TUBERCULOSIS
  15. EFAVIRENZ [Concomitant]
     Indication: HIV INFECTION
  16. PYRAZINAMIDE [Concomitant]
     Indication: TUBERCULOSIS
     Route: 042

REACTIONS (2)
  - SUDDEN DEATH [None]
  - ARRHYTHMIA [None]
